FAERS Safety Report 7895227-0 (Version None)
Quarter: 2011Q4

REPORT INFORMATION
  Report Type: 
  Country: None (occurrence: None)
  Receive Date: 20111106
  Receipt Date: 20110824
  Transmission Date: 20120403
  Serious: No
  Sender: FDA-Public Use
  Company Number: US-AMGEN-USASP2011043244

PATIENT
  Age: 75 Year
  Sex: Male

DRUGS (2)
  1. ENBREL [Suspect]
     Indication: PSORIATIC ARTHROPATHY
     Dosage: 50 MG, QWK
     Dates: start: 20110623, end: 20110715
  2. ENBREL [Suspect]
     Indication: PSORIASIS

REACTIONS (3)
  - CONTUSION [None]
  - LACERATION [None]
  - PLATELET COUNT ABNORMAL [None]
